FAERS Safety Report 9994627 (Version 2)
Quarter: 2014Q1

REPORT INFORMATION
  Report Type: Spontaneous
  Country: US (occurrence: US)
  Receive Date: 20140311
  Receipt Date: 20140320
  Transmission Date: 20141002
  Serious: No
  Sender: FDA-Public Use
  Company Number: US-009507513-1403USA004101

PATIENT
  Age: 13 Year
  Sex: Male

DRUGS (2)
  1. MAXALT [Suspect]
     Indication: MIGRAINE
     Dosage: 5 MG, PRN
     Route: 060
     Dates: start: 201303
  2. PAROXETINE [Concomitant]

REACTIONS (3)
  - Lip discolouration [Recovering/Resolving]
  - Skin discolouration [Recovering/Resolving]
  - Skin discolouration [Recovering/Resolving]
